FAERS Safety Report 14232405 (Version 1)
Quarter: 2017Q4

REPORT INFORMATION
  Report Type: Spontaneous
  Country: US (occurrence: US)
  Receive Date: 20171128
  Receipt Date: 20171128
  Transmission Date: 20180321
  Serious: Yes (Other)
  Sender: FDA-Public Use
  Company Number: US-SA-2017SA234406

PATIENT
  Age: 59 Year
  Sex: Male

DRUGS (7)
  1. TOUJEO [Suspect]
     Active Substance: INSULIN GLARGINE
     Indication: TYPE 2 DIABETES MELLITUS
     Dosage: 25-28UNITS
     Route: 051
     Dates: start: 2008
  2. LANTUS [Suspect]
     Active Substance: INSULIN GLARGINE
     Indication: TYPE 2 DIABETES MELLITUS
     Route: 051
  3. KWIKPEN [Concomitant]
  4. ACTOS [Concomitant]
     Active Substance: PIOGLITAZONE HYDROCHLORIDE
  5. SOLOSTAR [Suspect]
     Active Substance: DEVICE
     Indication: TYPE 2 DIABETES MELLITUS
     Dates: start: 2008
  6. METFORMIN [Concomitant]
     Active Substance: METFORMIN HYDROCHLORIDE
  7. HUMALOG KWIKPEN [Concomitant]
     Active Substance: INSULIN LISPRO
     Route: 065

REACTIONS (4)
  - Decreased appetite [Unknown]
  - Blood glucose increased [Unknown]
  - Cardiac disorder [Unknown]
  - Stress [Unknown]

NARRATIVE: CASE EVENT DATE: 2013
